FAERS Safety Report 5913531-X (Version None)
Quarter: 2008Q4

REPORT INFORMATION
  Report Type: 
  Country: None (occurrence: None)
  Receive Date: 20081009
  Receipt Date: 20080815
  Transmission Date: 20090506
  Serious: No
  Sender: FDA-Public Use
  Company Number: US-BAYER-200813469BCC

PATIENT
  Age: 68 Year
  Sex: Male
  Weight: 71 kg

DRUGS (6)
  1. ALEVE (CAPLET) [Suspect]
     Indication: PYREXIA
     Dosage: TOTAL DAILY DOSE: 1320 MG  UNIT DOSE: 220 MG
     Route: 048
     Dates: start: 20080814, end: 20080815
  2. LIPITOR [Concomitant]
  3. COZAAR [Concomitant]
  4. SYNTHROID [Concomitant]
  5. ASPIRIN [Concomitant]
     Route: 048
  6. PREVACID [Concomitant]

REACTIONS (2)
  - ABDOMINAL DISCOMFORT [None]
  - NAUSEA [None]
